FAERS Safety Report 25430183 (Version 1)
Quarter: 2025Q2

REPORT INFORMATION
  Report Type: Report from Study
  Country: US (occurrence: US)
  Receive Date: 20250612
  Receipt Date: 20250612
  Transmission Date: 20250717
  Serious: No
  Sender: TAKEDA
  Company Number: US-TAKEDA-2025TUS054051

PATIENT
  Sex: Female
  Weight: 120 kg

DRUGS (23)
  1. HUMAN IMMUNOGLOBULIN G [Suspect]
     Active Substance: HUMAN IMMUNOGLOBULIN G
     Indication: Immunodeficiency common variable
     Dosage: 400 MILLIGRAM/KILOGRAM, Q4WEEKS
  2. HUMAN IMMUNOGLOBULIN G [Suspect]
     Active Substance: HUMAN IMMUNOGLOBULIN G
  3. ACETAMINOPHEN [Concomitant]
     Active Substance: ACETAMINOPHEN
  4. EPINEPHRINE [Concomitant]
     Active Substance: EPINEPHRINE
  5. OMEPRAZOLE [Concomitant]
     Active Substance: OMEPRAZOLE
  6. SULFAMETHOXAZOLE\TRIMETHOPRIM [Concomitant]
     Active Substance: SULFAMETHOXAZOLE\TRIMETHOPRIM
  7. PROMETHEGAN [Concomitant]
     Active Substance: PROMETHAZINE HYDROCHLORIDE
  8. HEPARIN SODIUM [Concomitant]
     Active Substance: HEPARIN SODIUM
  9. SODIUM CHLORIDE [Concomitant]
     Active Substance: SODIUM CHLORIDE
  10. GALLIFREY [Concomitant]
     Active Substance: NORETHINDRONE ACETATE
  11. METOPIRONE [Concomitant]
     Active Substance: METYRAPONE
  12. LORAZEPAM [Concomitant]
     Active Substance: LORAZEPAM
  13. GABAPENTIN [Concomitant]
     Active Substance: GABAPENTIN
  14. ELIQUIS [Concomitant]
     Active Substance: APIXABAN
  15. BUSPIRONE HCL [Concomitant]
     Active Substance: BUSPIRONE HYDROCHLORIDE
  16. ALLOPURINOL [Concomitant]
     Active Substance: ALLOPURINOL
  17. LIDOCAINE [Concomitant]
     Active Substance: LIDOCAINE
  18. METHOTREXATE [Concomitant]
     Active Substance: METHOTREXATE
  19. TRANEXAMIC ACID [Concomitant]
     Active Substance: TRANEXAMIC ACID
  20. DIPHENHYDRAMINE [Concomitant]
     Active Substance: DIPHENHYDRAMINE
  21. DIPHENHYDRAMINE HYDROCHLORIDE [Concomitant]
     Active Substance: DIPHENHYDRAMINE HYDROCHLORIDE
  22. CETIRIZINE HCL [Concomitant]
     Active Substance: CETIRIZINE HYDROCHLORIDE
  23. SOLU-MEDROL [Concomitant]
     Active Substance: METHYLPREDNISOLONE SODIUM SUCCINATE

REACTIONS (1)
  - Dermatitis contact [Unknown]
